FAERS Safety Report 8837347 (Version 1)
Quarter: 2012Q4

REPORT INFORMATION
  Report Type: 
  Country: ZA (occurrence: ZA)
  Receive Date: 20121012
  Receipt Date: 20121012
  Transmission Date: 20130627
  Serious: Yes (Hospitalization)
  Sender: FDA-Public Use
  Company Number: ZA-ELI_LILLY_AND_COMPANY-ZA201210000539

PATIENT
  Age: 60 Year
  Sex: Male

DRUGS (4)
  1. HUMALOG 25% LISPRO, 75% NPL [Suspect]
     Indication: DIABETES MELLITUS
     Dosage: 10 u, bid
     Route: 058
     Dates: start: 201206
  2. METFORMIN [Concomitant]
     Indication: DIABETES MELLITUS
     Dosage: 500 mg, tid
     Route: 048
     Dates: start: 201110
  3. CO-DIOVAN [Concomitant]
     Indication: HYPERTENSION
     Dosage: 1 DF, each morning
     Route: 048
  4. ADALAT XL [Concomitant]
     Indication: HYPERTENSION
     Dosage: 60 mg, each morning
     Route: 048

REACTIONS (2)
  - Arthropod bite [Recovering/Resolving]
  - Blister [Recovering/Resolving]
